FAERS Safety Report 14324545 (Version 2)
Quarter: 2018Q1

REPORT INFORMATION
  Report Type: Spontaneous
  Country: ES (occurrence: ES)
  Receive Date: 20171226
  Receipt Date: 20180202
  Transmission Date: 20180509
  Serious: Yes (Other)
  Sender: FDA-Public Use
  Company Number: ES-MYLANLABS-2017M1073700

PATIENT
  Sex: Female

DRUGS (21)
  1. AMLODIPINE [Suspect]
     Active Substance: AMLODIPINE BESYLATE
     Indication: PRODUCT USED FOR UNKNOWN INDICATION
     Dosage: 1 DF, QD
     Dates: start: 20160901
  2. SIMVASTATIN. [Suspect]
     Active Substance: SIMVASTATIN
     Indication: PRODUCT USED FOR UNKNOWN INDICATION
     Dosage: 1 DF, QD
     Dates: start: 20160901, end: 20170420
  3. TOPIRAMATE. [Suspect]
     Active Substance: TOPIRAMATE
     Indication: PRODUCT USED FOR UNKNOWN INDICATION
     Dosage: 1 DF, QD
     Dates: start: 20170420, end: 20170509
  4. TOPIRAMATE. [Suspect]
     Active Substance: TOPIRAMATE
     Dosage: 0.5 DF, UNK
     Dates: start: 20170203, end: 20170420
  5. TEPAZEPAM [Suspect]
     Active Substance: DIAZEPAM\SULPIRIDE
     Indication: PRODUCT USED FOR UNKNOWN INDICATION
     Dosage: UNK, QD
     Dates: start: 20160901
  6. ESCITALOPRAM [Suspect]
     Active Substance: ESCITALOPRAM OXALATE
     Indication: PRODUCT USED FOR UNKNOWN INDICATION
     Dosage: 1 DF, QD
     Dates: start: 20160901
  7. SIMVASTATIN. [Suspect]
     Active Substance: SIMVASTATIN
     Dosage: 20 MG, UNK
     Dates: start: 20170420
  8. NAPROXEN. [Suspect]
     Active Substance: NAPROXEN
     Indication: PRODUCT USED FOR UNKNOWN INDICATION
     Dosage: 1 DF, BID
     Dates: start: 20160901, end: 20161118
  9. AMITRIPTYLINE [Suspect]
     Active Substance: AMITRIPTYLINE
     Dosage: 25 MG, UNK
     Dates: start: 20170516
  10. GLIBENCLAMIDA [Suspect]
     Active Substance: GLYBURIDE
     Indication: PRODUCT USED FOR UNKNOWN INDICATION
     Dosage: 1 DF, BID
     Dates: start: 20160901
  11. LORMETAZEPAM [Suspect]
     Active Substance: LORMETAZEPAM
     Indication: PRODUCT USED FOR UNKNOWN INDICATION
     Dosage: 1 DF, QD
     Route: 065
     Dates: start: 20160901, end: 20160930
  12. PARACETAMOL [Suspect]
     Active Substance: ACETAMINOPHEN
     Indication: PRODUCT USED FOR UNKNOWN INDICATION
     Dosage: 1 DF, TID
     Dates: start: 20160901, end: 20161118
  13. OMEPRAZOLE. [Suspect]
     Active Substance: OMEPRAZOLE
     Indication: PRODUCT USED FOR UNKNOWN INDICATION
     Dosage: 1 DF, QD
     Dates: start: 20160901, end: 20161125
  14. TOPIRAMATO [Suspect]
     Active Substance: TOPIRAMATE
     Indication: PRODUCT USED FOR UNKNOWN INDICATION
     Dosage: 0.5 DF, QD
     Dates: start: 20170203, end: 20170420
  15. AMITRIPTYLINE [Suspect]
     Active Substance: AMITRIPTYLINE
     Indication: HEADACHE
     Dosage: UNK, QD
     Dates: start: 20161118
  16. ENALAPRIL/HYDROCHLOROTHIAZIDE [Suspect]
     Active Substance: ENALAPRIL MALEATE\HYDROCHLOROTHIAZIDE
     Indication: PRODUCT USED FOR UNKNOWN INDICATION
     Dosage: 1 DF, QD
     Dates: start: 20160901
  17. DIAZEPAM. [Suspect]
     Active Substance: DIAZEPAM
     Dosage: UNK
     Route: 065
     Dates: start: 20160901
  18. DIAZEPAM. [Suspect]
     Active Substance: DIAZEPAM
     Indication: PRODUCT USED FOR UNKNOWN INDICATION
     Dosage: 0.5 DF, QD
     Dates: start: 20160930, end: 20161021
  19. AMITRIPTYLINE [Suspect]
     Active Substance: AMITRIPTYLINE
     Indication: HEADACHE
     Dosage: 12.5 MG, QD
     Dates: start: 20170509, end: 20170516
  20. PARACETAMOL/TRAMADOL [Suspect]
     Active Substance: ACETAMINOPHEN\TRAMADOL
     Indication: PRODUCT USED FOR UNKNOWN INDICATION
     Dosage: 1 DF, TID
     Dates: start: 20161118
  21. METOCLOPRAMIDE. [Concomitant]
     Active Substance: METOCLOPRAMIDE
     Indication: PRODUCT USED FOR UNKNOWN INDICATION
     Dosage: 1 WEEK TREATMENT
     Route: 065
     Dates: start: 20161125

REACTIONS (9)
  - Treatment noncompliance [Unknown]
  - Headache [Not Recovered/Not Resolved]
  - Drug ineffective [Unknown]
  - Dizziness [Recovering/Resolving]
  - Depression [Recovering/Resolving]
  - Somnolence [Recovering/Resolving]
  - Insomnia [Recovering/Resolving]
  - Fall [Unknown]
  - Pain in extremity [Recovered/Resolved]

NARRATIVE: CASE EVENT DATE: 201610
